FAERS Safety Report 10256029 (Version 1)
Quarter: 2014Q2

REPORT INFORMATION
  Report Type: Report from Study
  Country: CA (occurrence: CA)
  Receive Date: 20140624
  Receipt Date: 20140624
  Transmission Date: 20141212
  Serious: Yes (Other)
  Sender: FDA-Public Use
  Company Number: CA-BRISTOL-MYERS SQUIBB COMPANY-21007653

PATIENT
  Age: 84 Year
  Sex: Female

DRUGS (17)
  1. ORENCIA [Suspect]
     Indication: RHEUMATOID ARTHRITIS
     Dosage: ONGOING
     Route: 042
     Dates: start: 20121219
  2. PANTOPRAZOLE [Concomitant]
  3. ASAPHEN [Concomitant]
  4. BROMAZEPAM [Concomitant]
  5. METHOTREXATE [Concomitant]
  6. FOLIC ACID [Concomitant]
  7. DOCUSATE SODIUM [Concomitant]
  8. SENNA [Concomitant]
  9. NITROGLYCERIN SPRAY [Concomitant]
  10. NOVO-GESIC FORTE [Concomitant]
  11. AMITRIPTYLINE [Concomitant]
  12. ATENOLOL [Concomitant]
  13. EZETROL [Concomitant]
  14. COVERSYL [Concomitant]
  15. VENLAFAXINE HCL [Concomitant]
  16. ATORVASTATIN [Concomitant]
  17. CALCIUM +  MAGNESIUM [Concomitant]

REACTIONS (1)
  - Venous thrombosis [Unknown]
